FAERS Safety Report 5663876-6 (Version None)
Quarter: 2008Q1

REPORT INFORMATION
  Report Type: 
  Country: None (occurrence: None)
  Receive Date: 20080311
  Receipt Date: 20080227
  Transmission Date: 20080703
  Serious: Yes (Hospitalization)
  Sender: FDA-Public Use
  Company Number: GXKR2008TR02232

PATIENT
  Age: 30 Year
  Sex: Male

DRUGS (2)
  1. SIMVASTATIN [Suspect]
     Indication: HYPERLIPIDAEMIA
  2. COLCHICUM JTL LIQ [Suspect]
     Indication: RENAL AMYLOIDOSIS

REACTIONS (6)
  - BLOOD CREATINE PHOSPHOKINASE INCREASED [None]
  - DRUG INTERACTION [None]
  - MUSCLE SPASMS [None]
  - MUSCULAR WEAKNESS [None]
  - MYALGIA [None]
  - PERIPHERAL SENSORY NEUROPATHY [None]
